FAERS Safety Report 4362921-8 (Version None)
Quarter: 2004Q2

REPORT INFORMATION
  Report Type: 
  Country: None (occurrence: None)
  Receive Date: 20040524
  Receipt Date: 20040512
  Transmission Date: 20050107
  Serious: Yes (Other)
  Sender: FDA-Public Use
  Company Number: US-JNJFOC-20040502989

PATIENT
  Age: 29 Year
  Sex: Female
  Weight: 54.43 kg

DRUGS (1)
  1. ORTHO TRI-CYCLEN [Suspect]
     Indication: DRUG USE FOR UNKNOWN INDICATION
     Route: 049
     Dates: start: 20030101

REACTIONS (5)
  - ASTHENIA [None]
  - CONVULSION [None]
  - GAIT DISTURBANCE [None]
  - SUPERIOR SAGITTAL SINUS THROMBOSIS [None]
  - VISION BLURRED [None]
